FAERS Safety Report 5404438-5 (Version None)
Quarter: 2007Q3

REPORT INFORMATION
  Report Type: 
  Country: None (occurrence: None)
  Receive Date: 20070711
  Receipt Date: 20070403
  Transmission Date: 20080115
  Serious: Yes (Hospitalization)
  Sender: FDA-Public Use
  Company Number: 2007040013

PATIENT
  Age: 26 Year
  Sex: Male

DRUGS (2)
  1. CARISOPRODOL [Suspect]
     Indication: BACK PAIN
     Dosage: 30 TABS/DAY, PO 3-4 YEARS AGO
     Route: 048
  2. COCAINE [Concomitant]

REACTIONS (2)
  - DRUG ABUSER [None]
  - DRUG DEPENDENCE [None]
